FAERS Safety Report 8150638-3 (Version None)
Quarter: 2012Q1

REPORT INFORMATION
  Report Type: 
  Country: None (occurrence: None)
  Receive Date: 20120220
  Receipt Date: 20120210
  Transmission Date: 20120608
  Serious: Yes (Hospitalization, Other)
  Sender: FDA-Public Use
  Company Number: PHHO2011US16518

PATIENT
  Sex: Female
  Weight: 84.354 kg

DRUGS (1)
  1. ALISKIREN [Suspect]
     Indication: CORONARY ARTERY DISEASE
     Dosage: 300 MG, UNK
     Route: 048
     Dates: start: 20091002

REACTIONS (2)
  - ARTERIOSCLEROSIS CORONARY ARTERY [None]
  - CONDITION AGGRAVATED [None]
